FAERS Safety Report 4986160-2 (Version None)
Quarter: 2006Q2

REPORT INFORMATION
  Report Type: 
  Country: None (occurrence: None)
  Receive Date: 20060428
  Receipt Date: 20050922
  Transmission Date: 20061013
  Serious: Yes (Death)
  Sender: FDA-Public Use
  Company Number: NO-MERCK-0509NOR00026

PATIENT
  Age: 69 Year
  Sex: Male

DRUGS (6)
  1. VIOXX [Suspect]
     Indication: PODAGRA
     Route: 048
     Dates: start: 20040302, end: 20040301
  2. CANDESARTAN CILEXETIL [Concomitant]
     Indication: ESSENTIAL HYPERTENSION
     Route: 048
     Dates: start: 20030606, end: 20030601
  3. CANDESARTAN CILEXETIL [Concomitant]
     Route: 048
     Dates: start: 20030624, end: 20040301
  4. PENICILLIN V POTASSIUM [Concomitant]
     Indication: ERYSIPELAS
     Route: 048
     Dates: start: 20040201, end: 20040301
  5. CIPROFLOXACIN HYDROCHLORIDE [Concomitant]
     Indication: ERYSIPELAS
     Route: 048
     Dates: start: 20040201, end: 20040301
  6. ALLOPURINOL [Concomitant]
     Indication: PODAGRA
     Route: 047
     Dates: start: 20040301, end: 20040301

REACTIONS (4)
  - ANGINA PECTORIS [None]
  - CARDIAC ARREST [None]
  - EMBOLISM [None]
  - SUDDEN DEATH [None]
